FAERS Safety Report 9570960 (Version 1)
Quarter: 2013Q4

REPORT INFORMATION
  Report Type: Spontaneous
  Country: SE (occurrence: SE)
  Receive Date: 20131001
  Receipt Date: 20131001
  Transmission Date: 20140711
  Serious: Yes (Other)
  Sender: FDA-Public Use
  Company Number: SE-JNJFOC-20130913799

PATIENT
  Age: 78 Year
  Sex: Female

DRUGS (4)
  1. REMICADE [Suspect]
     Indication: PRODUCT USED FOR UNKNOWN INDICATION
     Route: 042
     Dates: end: 20130620
  2. CETIRIZINE [Concomitant]
     Indication: PROPHYLAXIS
     Route: 065
  3. PANODIL [Concomitant]
     Indication: PROPHYLAXIS
     Route: 065
  4. SOLU-CORTEF [Concomitant]
     Indication: PROPHYLAXIS
     Route: 065

REACTIONS (7)
  - Chest discomfort [Unknown]
  - Dysphonia [Unknown]
  - Pharyngeal oedema [Unknown]
  - Nausea [Unknown]
  - Infusion related reaction [Unknown]
  - Erythema [Unknown]
  - Pain in extremity [Unknown]
